FAERS Safety Report 9209070 (Version 1)
Quarter: 2013Q2

REPORT INFORMATION
  Report Type: Report from Study
  Country: US (occurrence: US)
  Receive Date: 20130404
  Receipt Date: 20130404
  Transmission Date: 20140414
  Serious: Yes (Hospitalization, Other)
  Sender: FDA-Public Use
  Company Number: PHHY2013US031786

PATIENT
  Age: 70 Year
  Sex: Male
  Weight: 92 kg

DRUGS (4)
  1. EVEROLIMUS [Suspect]
     Indication: NEUROENDOCRINE CARCINOMA
     Dosage: UNK
     Route: 048
     Dates: start: 20120906
  2. OCTREOTIDE [Suspect]
     Indication: NEUROENDOCRINE CARCINOMA
     Dosage: 20 MG, DAY 1
     Route: 030
     Dates: start: 20120906
  3. BEVACIZUMAB [Suspect]
     Indication: NEUROENDOCRINE CARCINOMA
     Dosage: 10 MG/KG, UNK
     Route: 042
     Dates: start: 20120906
  4. LOVENOX [Concomitant]
     Dosage: UNK
     Dates: start: 20121128

REACTIONS (11)
  - Pneumonia [Recovered/Resolved]
  - Lung infection [Recovered/Resolved]
  - Dyspnoea [Recovered/Resolved]
  - Encephalopathy [Recovered/Resolved]
  - Mental status changes [Recovered/Resolved]
  - Embolism [Recovered/Resolved]
  - International normalised ratio increased [Recovered/Resolved]
  - Blood urea increased [Unknown]
  - Blood creatinine increased [Recovered/Resolved]
  - Asthenia [Unknown]
  - Hyperhidrosis [Unknown]
